FAERS Safety Report 26175741 (Version 1)
Quarter: 2025Q4

REPORT INFORMATION
  Report Type: Spontaneous
  Country: US (occurrence: US)
  Receive Date: 20251218
  Receipt Date: 20251218
  Transmission Date: 20260118
  Serious: Yes (Hospitalization)
  Sender: SANOFI AVENTIS
  Company Number: US-SA-2025SA376128

PATIENT
  Age: 37 Year
  Sex: Female
  Weight: 92.18 kg

DRUGS (5)
  1. DUPIXENT [Suspect]
     Active Substance: DUPILUMAB
     Indication: Dermatitis atopic
     Dosage: 300 MG, QOW
     Route: 058
     Dates: end: 20251119
  2. LIDOCAINE [Concomitant]
     Active Substance: LIDOCAINE
     Dosage: UNK
  3. CLOBETASOL [Concomitant]
     Active Substance: CLOBETASOL
     Dosage: UNK
  4. LOSARTAN POTASSIUM [Concomitant]
     Active Substance: LOSARTAN POTASSIUM
     Dosage: UNK
  5. FOLIC ACID [Concomitant]
     Active Substance: FOLIC ACID
     Dosage: UNK

REACTIONS (7)
  - Vomiting [Unknown]
  - Migraine [Unknown]
  - Back pain [Unknown]
  - Dysphagia [Unknown]
  - Chest pain [Unknown]
  - Breast pain [Unknown]
  - Rash [Unknown]

NARRATIVE: CASE EVENT DATE: 20250101
